FAERS Safety Report 7346196-3 (Version None)
Quarter: 2011Q1

REPORT INFORMATION
  Report Type: 
  Country: None (occurrence: None)
  Receive Date: 20110311
  Receipt Date: 20110301
  Transmission Date: 20110831
  Serious: Yes (Death, Other)
  Sender: FDA-Public Use
  Company Number: SK-CELGENEUS-260-21880-11030254

PATIENT

DRUGS (9)
  1. CYCLOPHOSPHAMIDE [Concomitant]
     Indication: MULTIPLE MYELOMA
     Route: 065
  2. ASPIRIN [Concomitant]
     Indication: THROMBOSIS PROPHYLAXIS
     Route: 065
  3. WARFARIN [Concomitant]
     Indication: THROMBOSIS PROPHYLAXIS
     Route: 065
  4. PREDNISONE [Concomitant]
     Indication: MULTIPLE MYELOMA
     Route: 065
  5. REVLIMID [Suspect]
     Indication: MULTIPLE MYELOMA
     Route: 048
  6. LMWH [Concomitant]
     Indication: THROMBOSIS PROPHYLAXIS
     Route: 065
  7. PLATELETS [Concomitant]
     Indication: PROPHYLAXIS
     Route: 065
  8. DEXAMETHASONE [Concomitant]
     Indication: MULTIPLE MYELOMA
     Route: 065
  9. NEUPOGEN [Concomitant]
     Indication: PROPHYLAXIS
     Route: 065

REACTIONS (9)
  - NEOPLASM [None]
  - CARDIOPULMONARY FAILURE [None]
  - INFECTION [None]
  - CONSTIPATION [None]
  - MULTIPLE MYELOMA [None]
  - THROMBOSIS [None]
  - NEUTROPENIA [None]
  - RENAL FAILURE [None]
  - FATIGUE [None]
